FAERS Safety Report 5345377-8 (Version None)
Quarter: 2007Q2

REPORT INFORMATION
  Report Type: 
  Country: None (occurrence: None)
  Receive Date: 20070601
  Receipt Date: 20070521
  Transmission Date: 20071010
  Serious: Yes (Hospitalization)
  Sender: FDA-Public Use
  Company Number: 2007S1000134

PATIENT
  Age: 20 Year
  Sex: Female

DRUGS (1)
  1. ACITRETIN [Suspect]
     Indication: HYPERKERATOSIS PALMARIS AND PLANTARIS
     Dosage: SEE IMAGE
     Route: 048

REACTIONS (2)
  - HAEMORRHAGE [None]
  - NAIL DISCOLOURATION [None]
